FAERS Safety Report 25903847 (Version 1)
Quarter: 2025Q4

REPORT INFORMATION
  Report Type: Spontaneous
  Country: US (occurrence: US)
  Receive Date: 20251010
  Receipt Date: 20251010
  Transmission Date: 20260118
  Serious: Yes (Hospitalization, Other)
  Sender: PIRAMAL
  Company Number: US-PIRAMAL PHARMA LIMITED-2025-PPL-000570

PATIENT

DRUGS (15)
  1. BACLOFEN [Suspect]
     Active Substance: BACLOFEN
     Indication: Paraplegia
     Dosage: 200 MICROGRAM PER MILLILITER
     Route: 037
  2. BACLOFEN [Suspect]
     Active Substance: BACLOFEN
     Indication: Spinal cord injury
  3. BACLOFEN [Suspect]
     Active Substance: BACLOFEN
     Indication: Neuropathy peripheral
  4. BACLOFEN [Suspect]
     Active Substance: BACLOFEN
     Indication: Pain
  5. BACLOFEN [Suspect]
     Active Substance: BACLOFEN
     Indication: Muscle spasticity
  6. MORPHINE SULFATE [Suspect]
     Active Substance: MORPHINE SULFATE
     Indication: Paraplegia
     Dosage: 10 MILLIGRAM PER MILLILITER
     Route: 037
  7. MORPHINE SULFATE [Suspect]
     Active Substance: MORPHINE SULFATE
     Indication: Spinal cord injury
  8. MORPHINE SULFATE [Suspect]
     Active Substance: MORPHINE SULFATE
     Indication: Neuropathy peripheral
  9. MORPHINE SULFATE [Suspect]
     Active Substance: MORPHINE SULFATE
     Indication: Pain
  10. MORPHINE SULFATE [Suspect]
     Active Substance: MORPHINE SULFATE
     Indication: Muscle spasticity
  11. BUPIVACAINE [Suspect]
     Active Substance: BUPIVACAINE
     Indication: Paraplegia
     Dosage: 3.75 MILLIGRAM PER MILLILITER
     Route: 037
  12. BUPIVACAINE [Suspect]
     Active Substance: BUPIVACAINE
     Indication: Spinal cord injury
  13. BUPIVACAINE [Suspect]
     Active Substance: BUPIVACAINE
     Indication: Neuropathy peripheral
  14. BUPIVACAINE [Suspect]
     Active Substance: BUPIVACAINE
     Indication: Pain
  15. BUPIVACAINE [Suspect]
     Active Substance: BUPIVACAINE
     Indication: Muscle spasticity

REACTIONS (3)
  - Loss of consciousness [Unknown]
  - Overdose [Unknown]
  - Off label use [Unknown]
